FAERS Safety Report 9147162 (Version 1)
Quarter: 2013Q1

REPORT INFORMATION
  Report Type: Spontaneous
  Country: US (occurrence: US)
  Receive Date: 20130307
  Receipt Date: 20130307
  Transmission Date: 20140127
  Serious: Yes (Hospitalization, Other)
  Sender: FDA-Public Use
  Company Number: US-ELI_LILLY_AND_COMPANY-US201302010360

PATIENT
  Sex: Female

DRUGS (4)
  1. HUMALOG LISPRO [Suspect]
     Indication: DIABETES MELLITUS
     Dosage: 5 U, BID
     Dates: start: 2012
  2. HUMALOG LISPRO [Suspect]
     Dosage: 5 U, BID
     Dates: start: 2012
  3. LANTUS [Concomitant]
  4. NOVOLOG [Concomitant]

REACTIONS (1)
  - Blood pressure increased [Unknown]
